FAERS Safety Report 5113379-2 (Version None)
Quarter: 2006Q3

REPORT INFORMATION
  Report Type: 
  Country: None (occurrence: None)
  Receive Date: 20060920
  Receipt Date: 20060824
  Transmission Date: 20061208
  Serious: Yes (Hospitalization)
  Sender: FDA-Public Use
  Company Number: 2006-07-0245

PATIENT
  Age: 81 Year
  Sex: Female

DRUGS (6)
  1. TEMOZOLOMIDE (S-P) (TEMOZOLOMIDE) [Suspect]
     Indication: MALIGNANT MELANOMA
     Dosage: 330 MG; PO
     Route: 048
     Dates: start: 20060520, end: 20060524
  2. COZAAR [Concomitant]
  3. TRAMADOL HCL [Concomitant]
  4. PARACETAMOL [Concomitant]
  5. LIPITOR [Concomitant]
  6. PURESIS [Concomitant]

REACTIONS (10)
  - ANAEMIA [None]
  - ASPIRATION [None]
  - CHEST PAIN [None]
  - EPISTAXIS [None]
  - FALL [None]
  - FULL BLOOD COUNT DECREASED [None]
  - IMPAIRED SELF-CARE [None]
  - RIB FRACTURE [None]
  - SKELETAL INJURY [None]
  - THROMBOCYTOPENIA [None]
